FAERS Safety Report 8598273-7 (Version None)
Quarter: 2012Q3

REPORT INFORMATION
  Report Type: 
  Country: None (occurrence: None)
  Receive Date: 20120816
  Receipt Date: 20120809
  Transmission Date: 20120928
  Serious: No
  Sender: FDA-Public Use
  Company Number: -VALEANT-2012VX003598

PATIENT
  Age: 88 Year
  Sex: Male
  Weight: 79 kg

DRUGS (3)
  1. FLUOROURACIL [Suspect]
     Indication: PRECANCEROUS CELLS PRESENT
     Route: 065
     Dates: end: 20120525
  2. OXYCODONE [Concomitant]
     Route: 065
  3. FLUOROURACIL [Suspect]
     Route: 065
     Dates: start: 20120526, end: 20120527

REACTIONS (5)
  - ABASIA [None]
  - PAIN [None]
  - BURNING SENSATION [None]
  - OEDEMA PERIPHERAL [None]
  - RASH PUSTULAR [None]
